FAERS Safety Report 15244436 (Version 1)
Quarter: 2018Q3

REPORT INFORMATION
  Report Type: Report from Study
  Country: US (occurrence: US)
  Receive Date: 20180806
  Receipt Date: 20180806
  Transmission Date: 20181010
  Serious: Yes (Hospitalization)
  Sender: FDA-Public Use
  Company Number: US-LUNDBECK-DKLU2052396

PATIENT
  Age: 15 Month
  Sex: Male
  Weight: 12 kg

DRUGS (1)
  1. SABRIL [Suspect]
     Active Substance: VIGABATRIN
     Indication: TUBEROUS SCLEROSIS COMPLEX
     Route: 048
     Dates: start: 20171206

REACTIONS (1)
  - Adenovirus infection [Unknown]

NARRATIVE: CASE EVENT DATE: 20180527
